FAERS Safety Report 15915069 (Version 3)
Quarter: 2021Q1

REPORT INFORMATION
  Report Type: Spontaneous
  Country: US (occurrence: US)
  Receive Date: 20190204
  Receipt Date: 20210201
  Transmission Date: 20210419
  Serious: No
  Sender: FDA-Public Use
  Company Number: US-ABBVIE-18K-163-2575751-00

PATIENT
  Sex: Female

DRUGS (1)
  1. HUMIRA [Suspect]
     Active Substance: ADALIMUMAB
     Indication: PRODUCT USED FOR UNKNOWN INDICATION
     Route: 058

REACTIONS (6)
  - Pruritus [Unknown]
  - Rash pruritic [Not Recovered/Not Resolved]
  - Scar [Not Recovered/Not Resolved]
  - General physical condition abnormal [Unknown]
  - Skin irritation [Not Recovered/Not Resolved]
  - Increased tendency to bruise [Unknown]
